FAERS Safety Report 13954333 (Version 1)
Quarter: 2017Q3

REPORT INFORMATION
  Report Type: Spontaneous
  Country: US (occurrence: US)
  Receive Date: 20170911
  Receipt Date: 20170911
  Transmission Date: 20171128
  Serious: No
  Sender: FDA-Public Use
  Company Number: US-LUPIN PHARMACEUTICALS INC.-E2B_00007177

PATIENT
  Age: 37 Year
  Sex: Female
  Weight: 51.26 kg

DRUGS (4)
  1. MELOXICAM TABLETS USP, 7.5 MG [Suspect]
     Active Substance: MELOXICAM
     Dosage: 7.5 MG,QD,
     Dates: start: 20170112
  2. MELOXICAM TABLETS USP, 7.5 MG [Suspect]
     Active Substance: MELOXICAM
     Indication: PAIN
     Dosage: 7.5 MG,QD,
     Dates: start: 20170106, end: 20170110
  3. EFFEXOR XL [Concomitant]
     Indication: PRODUCT USED FOR UNKNOWN INDICATION
     Dosage: 75 MG,QD,
     Route: 048
  4. ADDERALL [Concomitant]
     Indication: PRODUCT USED FOR UNKNOWN INDICATION
     Dosage: 20 MG,QD,
     Route: 048

REACTIONS (2)
  - Inappropriate schedule of drug administration [Unknown]
  - Urinary incontinence [Not Recovered/Not Resolved]

NARRATIVE: CASE EVENT DATE: 20170106
